FAERS Safety Report 8281884-6 (Version None)
Quarter: 2012Q2

REPORT INFORMATION
  Report Type: 
  Country: None (occurrence: None)
  Receive Date: 20120413
  Receipt Date: 20120406
  Transmission Date: 20120825
  Serious: Yes (Death)
  Sender: FDA-Public Use
  Company Number: FR-JNJFOC-20110910189

PATIENT
  Sex: Male
  Weight: 75 kg

DRUGS (25)
  1. SULFARLEM [Concomitant]
     Route: 065
  2. ESIDRIX [Suspect]
     Indication: PRODUCT USED FOR UNKNOWN INDICATION
     Route: 048
     Dates: start: 20090113, end: 20110729
  3. BETAHISTINE [Suspect]
     Indication: PRODUCT USED FOR UNKNOWN INDICATION
     Route: 048
     Dates: start: 20110527, end: 20110729
  4. LOVENOX [Concomitant]
     Route: 048
     Dates: start: 20110301
  5. EDUCTYL [Concomitant]
     Route: 065
     Dates: start: 20090101
  6. RISPERDAL CONSTA [Suspect]
     Indication: SCHIZOPHRENIA, PARANOID TYPE
     Route: 030
     Dates: start: 20100708, end: 20110722
  7. ATACAND [Suspect]
     Indication: PRODUCT USED FOR UNKNOWN INDICATION
     Route: 048
     Dates: start: 20090102, end: 20090112
  8. LOXAPINE HCL [Suspect]
     Route: 048
     Dates: start: 20081220, end: 20110729
  9. IMOVANE [Suspect]
     Indication: PRODUCT USED FOR UNKNOWN INDICATION
     Route: 048
     Dates: start: 20041227, end: 20110729
  10. ZOPICLONE [Concomitant]
     Route: 065
     Dates: start: 20060101
  11. LEVOTHYROXINE SODIUM [Concomitant]
     Route: 065
     Dates: start: 20040101
  12. VASTAREL [Suspect]
     Indication: PRODUCT USED FOR UNKNOWN INDICATION
     Route: 048
     Dates: start: 20110527, end: 20110729
  13. ATARAX [Suspect]
     Indication: PRODUCT USED FOR UNKNOWN INDICATION
     Route: 048
     Dates: start: 20101220, end: 20110729
  14. HALDOL [Suspect]
     Indication: PRODUCT USED FOR UNKNOWN INDICATION
     Route: 048
     Dates: start: 20041027, end: 20090716
  15. POLYETHYLENE GLYCOL [Concomitant]
     Indication: LAXATIVE SUPPORTIVE CARE
     Route: 065
  16. LEPTICUR [Concomitant]
     Route: 065
  17. MODECATE [Concomitant]
     Route: 065
     Dates: start: 20060101
  18. TRIMEPRAZINE TARTRATE [Suspect]
     Indication: PRODUCT USED FOR UNKNOWN INDICATION
     Route: 048
     Dates: start: 20081220, end: 20110729
  19. NORMACOL STANDARD [Concomitant]
     Route: 065
     Dates: start: 20090101
  20. ATACAND [Suspect]
     Route: 048
     Dates: start: 20090113, end: 20110729
  21. LOXAPINE HCL [Suspect]
     Indication: PRODUCT USED FOR UNKNOWN INDICATION
     Route: 048
     Dates: start: 20010301
  22. CELESTAMINE TAB [Concomitant]
     Route: 048
     Dates: start: 20100101
  23. PARAFFIN [Concomitant]
     Route: 065
     Dates: start: 20090101
  24. X-PREP [Concomitant]
     Route: 065
     Dates: start: 20090101
  25. AMLODIPINE BESYLATE [Suspect]
     Indication: PRODUCT USED FOR UNKNOWN INDICATION
     Route: 048
     Dates: start: 20081230, end: 20110729

REACTIONS (3)
  - CARDIAC ARREST [None]
  - ELECTROCARDIOGRAM QT PROLONGED [None]
  - HYPOKALAEMIA [None]
